FAERS Safety Report 11216752 (Version 1)
Quarter: 2015Q2

REPORT INFORMATION
  Report Type: Spontaneous
  Country: JP (occurrence: JP)
  Receive Date: 20150624
  Receipt Date: 20150624
  Transmission Date: 20150821
  Serious: Yes (Other)
  Sender: FDA-Public Use
  Company Number: JP-BANPHARM-20153991

PATIENT
  Age: 21 Year
  Sex: Female

DRUGS (1)
  1. PROGESTERONE UNKNOWN PRODUCT [Suspect]
     Active Substance: PROGESTERONE
     Indication: ALLERGY TEST
     Dosage: 20 UL,
     Route: 023

REACTIONS (3)
  - Drug eruption [Not Recovered/Not Resolved]
  - Autoimmune dermatitis [Not Recovered/Not Resolved]
  - Anaphylactic reaction [Recovered/Resolved]
